FAERS Safety Report 7487926-X (Version None)
Quarter: 2011Q2

REPORT INFORMATION
  Report Type: 
  Country: None (occurrence: None)
  Receive Date: 20110518
  Receipt Date: 20110420
  Transmission Date: 20111010
  Serious: Yes (Hospitalization, Other)
  Sender: FDA-Public Use
  Company Number: US-BAYER-200941197NA

PATIENT
  Age: 30 Year
  Sex: Female
  Weight: 51.247 kg

DRUGS (8)
  1. IMITREX [Concomitant]
  2. ANTIBIOTICS [Concomitant]
  3. ANTICOAGULANTS [Concomitant]
  4. YAZ [Suspect]
     Indication: PRODUCT USED FOR UNKNOWN INDICATION
     Dosage: UNK
     Dates: start: 20081001, end: 20090801
  5. FENTANYL [Concomitant]
     Indication: MIGRAINE
     Dosage: UNK
     Dates: start: 20090801, end: 20101201
  6. HEART MEDICATIONS [Concomitant]
  7. VICODIN [Concomitant]
  8. NSAID'S [Concomitant]

REACTIONS (7)
  - PAIN [None]
  - DEPRESSION [None]
  - AMNESIA [None]
  - POST-TRAUMATIC STRESS DISORDER [None]
  - EMOTIONAL DISTRESS [None]
  - CEREBROVASCULAR ACCIDENT [None]
  - INTRACRANIAL VENOUS SINUS THROMBOSIS [None]
